FAERS Safety Report 12640775 (Version 1)
Quarter: 2016Q3

REPORT INFORMATION
  Report Type: Spontaneous
  Country: CH (occurrence: CH)
  Receive Date: 20160810
  Receipt Date: 20160810
  Transmission Date: 20161109
  Serious: Yes (Life-Threatening, Hospitalization)
  Sender: FDA-Public Use
  Company Number: CH-TEVA-681817ISR

PATIENT
  Age: 23 Year
  Sex: Male

DRUGS (5)
  1. DAFALGAN [Suspect]
     Active Substance: ACETAMINOPHEN
     Indication: TIBIA FRACTURE
     Route: 048
     Dates: start: 20160525
  2. ANESTHETICS NOS [Concomitant]
     Active Substance: UNSPECIFIED INGREDIENT
     Route: 065
     Dates: start: 20160525, end: 20160525
  3. NOVALGIN [Suspect]
     Active Substance: METAMIZOLE SODIUM
     Indication: TIBIA FRACTURE
     Dosage: 2 GRAM DAILY; THERAPY DURATION: ABOUT 1 MONTH
     Route: 048
  4. IRFEN [Suspect]
     Active Substance: IBUPROFEN
     Indication: TIBIA FRACTURE
     Route: 048
     Dates: start: 20160525
  5. ANESTHETICS NOS [Concomitant]
     Active Substance: UNSPECIFIED INGREDIENT
     Route: 065
     Dates: start: 20160624, end: 20160624

REACTIONS (4)
  - Agranulocytosis [Recovered/Resolved]
  - Pyrexia [Recovered/Resolved]
  - Immune reconstitution inflammatory syndrome [Recovering/Resolving]
  - Tonsillitis [Recovered/Resolved]

NARRATIVE: CASE EVENT DATE: 20160626
